FAERS Safety Report 22012696 (Version 2)
Quarter: 2023Q1

REPORT INFORMATION
  Report Type: Spontaneous
  Country: CO (occurrence: CO)
  Receive Date: 20230220
  Receipt Date: 20230301
  Transmission Date: 20230418
  Serious: Yes (Hospitalization, Other)
  Sender: FDA-Public Use
  Company Number: CO-INSUD PHARMA-2302CO00852

PATIENT

DRUGS (1)
  1. MIDODRINE HYDROCHLORIDE [Suspect]
     Active Substance: MIDODRINE HYDROCHLORIDE
     Indication: Intentional overdose
     Dosage: INTENTIONAL INTAKE OF 20 X 5 MG TABLETS EQUIVALENT TO TOTAL DOSE OF 100 MG
     Route: 065

REACTIONS (8)
  - Hypertensive crisis [Recovered/Resolved]
  - Bradycardia [Recovered/Resolved]
  - Sinus bradycardia [Recovered/Resolved]
  - Liver disorder [Recovered/Resolved]
  - Azotaemia [Recovered/Resolved]
  - Myocardial injury [Recovered/Resolved]
  - Toxicity to various agents [Recovered/Resolved]
  - Intentional overdose [Recovered/Resolved]
